FAERS Safety Report 7680267-7 (Version None)
Quarter: 2011Q3

REPORT INFORMATION
  Report Type: 
  Country: None (occurrence: None)
  Receive Date: 20110811
  Receipt Date: 20110811
  Transmission Date: 20111222
  Serious: Yes (Other)
  Sender: FDA-Public Use
  Company Number: None

PATIENT
  Sex: Female

DRUGS (1)
  1. FORTEO [Suspect]
     Indication: OSTEOPOROSIS
     Dosage: 20MCG DAILY SUBQ
     Route: 058
     Dates: start: 20110525, end: 20110526

REACTIONS (4)
  - LETHARGY [None]
  - FEELING HOT [None]
  - ARTHRALGIA [None]
  - ASTHENIA [None]
